FAERS Safety Report 9252782 (Version 1)
Quarter: 2013Q1

REPORT INFORMATION
  Report Type: Spontaneous
  Country: US (occurrence: None)
  Receive Date: 20130305
  Receipt Date: 20130305
  Transmission Date: 20140127
  Serious: Yes (Other)
  Sender: FDA-Public Use
  Company Number: 163-21880-12050026

PATIENT
  Age: 84 Year
  Sex: Female
  Weight: 57.15 kg

DRUGS (12)
  1. REVLIMID [Suspect]
     Indication: PLASMA CELL MYELOMA
     Dosage: 10 MG, DAILY X 21 DAYS, PO
     Route: 048
     Dates: start: 20120409
  2. DEXAMETHASONE (DEXAMETHASONE) [Concomitant]
  3. CALTRATE (CALCIUM CARBONATE) [Concomitant]
  4. CLARITIN (LORATADINE) [Concomitant]
  5. DIGOXIN (DIGOXIN) [Concomitant]
  6. PLAVIX (CLOPIDOGREL SULFATE) [Concomitant]
  7. TOPROL (METOPROLOL SUCCINATE) [Concomitant]
  8. ASPIRIN (ACETYLSALICYLIC ACID) [Concomitant]
  9. LIPITOR (ATORVASTATIN) [Concomitant]
  10. CARDIZEM (DILTIAZEM HYDROCHLORIDE) [Concomitant]
  11. HEMOCYTE (FERROUS FUMARATE) [Concomitant]
  12. KEPPRA (LEVETIRACETAM) [Concomitant]

REACTIONS (8)
  - Constipation [None]
  - Decreased appetite [None]
  - Dysgeusia [None]
  - Nervousness [None]
  - Muscular weakness [None]
  - Muscle spasms [None]
  - Hyperhidrosis [None]
  - Weight decreased [None]
